FAERS Safety Report 4434541-8 (Version None)
Quarter: 2004Q3

REPORT INFORMATION
  Report Type: 
  Country: None (occurrence: None)
  Receive Date: 20040727
  Receipt Date: 20031230
  Transmission Date: 20050211
  Serious: Yes (Hospitalization, Other)
  Sender: FDA-Public Use
  Company Number: C2003-3374.01

PATIENT
  Sex: Male

DRUGS (1)
  1. CLOMIPRAMINE HCL [Suspect]
     Dates: start: 20031201

REACTIONS (2)
  - DIARRHOEA [None]
  - URINARY RETENTION [None]
